FAERS Safety Report 14091071 (Version 1)
Quarter: 2017Q4

REPORT INFORMATION
  Report Type: Spontaneous
  Country: US (occurrence: US)
  Receive Date: 20171016
  Receipt Date: 20171016
  Transmission Date: 20180321
  Serious: No
  Sender: FDA-Public Use
  Company Number: PHEH2017US032881

PATIENT
  Sex: Male

DRUGS (1)
  1. CHOLESTYRAMINE FOR ORAL SUSPENSION USP [Suspect]
     Active Substance: CHOLESTYRAMINE
     Indication: MYCOTOXICOSIS
     Route: 065

REACTIONS (4)
  - Product use in unapproved indication [Unknown]
  - Hypersensitivity [Unknown]
  - Dyspnoea [Unknown]
  - Palpitations [Unknown]
